FAERS Safety Report 8487040-0 (Version None)
Quarter: 2012Q3

REPORT INFORMATION
  Report Type: 
  Country: None (occurrence: None)
  Receive Date: 20120704
  Receipt Date: 20120628
  Transmission Date: 20120928
  Serious: Yes (Other)
  Sender: FDA-Public Use
  Company Number: PHEH2012US012990

PATIENT
  Sex: Female

DRUGS (8)
  1. BUPROPION HYDROCHLORIDE [Concomitant]
     Dosage: 1 DF (300 MG) PER DAY
  2. DIOVAN HCT [Suspect]
     Dosage: 1 DF (160/25 MG) PER DAY
  3. HYDROXYZINE HYDROCHLORIDE [Concomitant]
     Dosage: 1 DF (25 MG) PER DAY
  4. TRAZODONE HCL [Concomitant]
     Dosage: 1 DF (150 MG) PER DAY
  5. ONDANSETRON [Concomitant]
     Dosage: UNK UKN, UNK
  6. NORCO [Concomitant]
     Dosage: 1 DF (10/325 MG), Q4H
  7. XANAX [Concomitant]
     Dosage: 1 MG, UNK
  8. ACYCLOVIR [Concomitant]
     Dosage: 1 DF (400 MG) PER DAY

REACTIONS (6)
  - BACK PAIN [None]
  - PANIC ATTACK [None]
  - FIBROMYALGIA [None]
  - NERVE COMPRESSION [None]
  - ANXIETY [None]
  - PERIPHERAL NERVE LESION [None]
